FAERS Safety Report 12764587 (Version 4)
Quarter: 2016Q4

REPORT INFORMATION
  Report Type: Report from Study
  Country: DE (occurrence: DE)
  Receive Date: 20160920
  Receipt Date: 20161222
  Transmission Date: 20170207
  Serious: Yes (Hospitalization)
  Sender: FDA-Public Use
  Company Number: DE-BIOGEN-2016BI00292579

PATIENT
  Age: 42 Year
  Sex: Female
  Weight: 108 kg

DRUGS (2)
  1. LYRICA [Concomitant]
     Active Substance: PREGABALIN
     Indication: TRIGEMINAL NEURALGIA
     Route: 065
  2. TECFIDERA [Suspect]
     Active Substance: DIMETHYL FUMARATE
     Indication: MULTIPLE SCLEROSIS
     Route: 048
     Dates: start: 20150305

REACTIONS (7)
  - Multiple sclerosis relapse [Recovered/Resolved with Sequelae]
  - Urinary tract infection [Recovered/Resolved]
  - Feeding disorder [Unknown]
  - Weight decreased [Unknown]
  - Syncope [Recovered/Resolved]
  - Trigeminal neuralgia [Recovered/Resolved]
  - Gamma-glutamyltransferase increased [Unknown]

NARRATIVE: CASE EVENT DATE: 201509
